FAERS Safety Report 16880321 (Version 1)
Quarter: 2019Q4

REPORT INFORMATION
  Report Type: Spontaneous
  Country: US (occurrence: US)
  Receive Date: 20191003
  Receipt Date: 20191003
  Transmission Date: 20200122
  Serious: No
  Sender: FDA-Public Use
  Company Number: US-GLAXOSMITHKLINE-US2019175826

PATIENT
  Age: 42 Year
  Sex: Female

DRUGS (2)
  1. ABREVA [Suspect]
     Active Substance: DOCOSANOL
     Dosage: UNK, FIVE TIMES DAILY
     Dates: start: 20190923
  2. ABREVA [Suspect]
     Active Substance: DOCOSANOL
     Indication: ORAL HERPES
     Dosage: UNK, FIVE TIMES DAILY
     Dates: start: 20190923

REACTIONS (7)
  - Wrong technique in product usage process [Unknown]
  - Condition aggravated [Unknown]
  - Oral discomfort [Unknown]
  - Malaise [Unknown]
  - Lip pain [Unknown]
  - Oral herpes [Unknown]
  - Lip swelling [Unknown]

NARRATIVE: CASE EVENT DATE: 20190923
